FAERS Safety Report 6757075-4 (Version None)
Quarter: 2010Q2

REPORT INFORMATION
  Report Type: 
  Country: None (occurrence: None)
  Receive Date: 20100604
  Receipt Date: 20100524
  Transmission Date: 20101027
  Serious: Yes (Other)
  Sender: FDA-Public Use
  Company Number: US-ELI_LILLY_AND_COMPANY-US201004005988

PATIENT
  Sex: Female

DRUGS (41)
  1. FORTEO [Suspect]
     Indication: OSTEOPOROSIS
     Dosage: 20 UG, UNK
     Dates: end: 20100402
  2. FORTEO [Suspect]
     Dosage: 20 UG, UNK
     Dates: start: 20100301
  3. AVINZA [Concomitant]
     Dosage: 90 MG, 2/D
  4. VITAMIN B-12 [Concomitant]
     Dosage: UNK, WEEKLY (1/W)
  5. VITAMIN D [Concomitant]
     Dosage: 10000 U, DAILY (1/D)
  6. VITAMIN D [Concomitant]
     Dosage: 50000 U, WEEKLY (1/W)
  7. VITAMIN C [Concomitant]
  8. PRENATAL VITAMINS /01549301/ [Concomitant]
  9. COQ10 [Concomitant]
     Dosage: 150 MG, DAILY (1/D)
  10. VITAMIN E [Concomitant]
     Dosage: 400 MG, DAILY (1/D)
  11. HYDROCHLOROTHIAZIDE [Concomitant]
     Dosage: UNK, AS NEEDED
  12. BUMETANIDE [Concomitant]
     Dosage: UNK, AS NEEDED
  13. SPIRONOLACTONE [Concomitant]
     Dosage: UNK, AS NEEDED
  14. CALTRATE                           /00108001/ [Concomitant]
     Dosage: 600 MG, 2/D
  15. IMURAN [Concomitant]
     Dosage: UNK, UNK
  16. PREDNISONE [Concomitant]
  17. SYNTHROID [Concomitant]
     Dosage: 0.125 D/F, UNK
  18. AZATHIOPRINE [Concomitant]
     Dosage: 1 D/F, 2/D
  19. HYDROXYCHLOROQUINE SULFATE [Concomitant]
     Dosage: 200 MG, DAILY (1/D)
  20. POTASSIUM [Concomitant]
     Dosage: 20 MEQ, 2/D
  21. COLACE [Concomitant]
     Dosage: 2 D/F, 2/D
  22. ZEBUTAL [Concomitant]
  23. HYDROCODONE [Concomitant]
  24. PERCOCET [Concomitant]
  25. FEMHRT [Concomitant]
     Dosage: 1 D/F, DAILY (1/D)
  26. NYSTOP [Concomitant]
  27. NYSTATIN [Concomitant]
  28. SOMA [Concomitant]
     Dosage: UNK, AS NEEDED
  29. DIAZEPAM [Concomitant]
     Dosage: UNK, 3/D
  30. RITALIN [Concomitant]
     Dosage: 20 MG, 3/D
  31. ALLI [Concomitant]
  32. NEXIUM [Concomitant]
  33. PEPCID [Concomitant]
  34. TUMS [Concomitant]
  35. VALIUM [Concomitant]
     Dosage: UNK, AS NEEDED
  36. ZANAFLEX [Concomitant]
  37. REMERON [Concomitant]
  38. LEXAPRO [Concomitant]
  39. LIDODERM [Concomitant]
  40. VITAMINS [Concomitant]
  41. ROXICODONE [Concomitant]

REACTIONS (15)
  - ARTHRALGIA [None]
  - ATELECTASIS [None]
  - BLOOD PRESSURE INCREASED [None]
  - BONE PAIN [None]
  - CONVULSION [None]
  - DISORIENTATION [None]
  - DYSKINESIA [None]
  - FRACTURE [None]
  - JOINT STIFFNESS [None]
  - MALAISE [None]
  - MUSCLE TIGHTNESS [None]
  - MYALGIA [None]
  - RIB FRACTURE [None]
  - SCREAMING [None]
  - SPINAL FRACTURE [None]
